FAERS Safety Report 15188230 (Version 1)
Quarter: 2018Q3

REPORT INFORMATION
  Report Type: Spontaneous
  Country: ES (occurrence: ES)
  Receive Date: 20180724
  Receipt Date: 20180724
  Transmission Date: 20181010
  Serious: Yes (Other)
  Sender: FDA-Public Use
  Company Number: ES-TEVA-2018-ES-869961

PATIENT
  Age: 58 Year
  Sex: Male
  Weight: 86 kg

DRUGS (2)
  1. APOCARD 100 MG COMPRESSED, 30 TABLETS [Suspect]
     Active Substance: FLECAINIDE ACETATE
     Indication: ARRHYTHMIA
     Route: 048
  2. BISOPROLOL 2.5 MG 28 TABLETS [Suspect]
     Active Substance: BISOPROLOL
     Indication: ARRHYTHMIA
     Route: 048

REACTIONS (4)
  - Bradycardia [Recovered/Resolved]
  - Hallucination [Recovered/Resolved]
  - Nervousness [Recovered/Resolved]
  - Hypotension [Recovered/Resolved]
